FAERS Safety Report 14202712 (Version 3)
Quarter: 2018Q1

REPORT INFORMATION
  Report Type: Spontaneous
  Country: US (occurrence: US)
  Receive Date: 20171118
  Receipt Date: 20180327
  Transmission Date: 20180508
  Serious: Yes (Other)
  Sender: FDA-Public Use
  Company Number: US-SUN PHARMACEUTICAL INDUSTRIES LTD-2017US-154729

PATIENT
  Sex: Female

DRUGS (1)
  1. DIVALPROEX [Suspect]
     Active Substance: DIVALPROEX SODIUM
     Indication: DEPRESSION
     Dosage: UNK
     Route: 065
     Dates: start: 201504, end: 2015

REACTIONS (15)
  - Alopecia [Unknown]
  - Drug ineffective [Unknown]
  - Suicidal ideation [Not Recovered/Not Resolved]
  - Pruritus [Unknown]
  - Weight decreased [Recovered/Resolved]
  - Amnesia [Not Recovered/Not Resolved]
  - Decreased appetite [Unknown]
  - Blood disorder [Unknown]
  - Feeling abnormal [Unknown]
  - Muscle spasms [Unknown]
  - Insomnia [Unknown]
  - Pulmonary congestion [Unknown]
  - Back pain [Unknown]
  - Impaired quality of life [Unknown]
  - Burning sensation [Unknown]

NARRATIVE: CASE EVENT DATE: 2015
